FAERS Safety Report 8325784 (Version 2)
Quarter: 2012Q4

REPORT INFORMATION
  Report Type: 
  Country: US (occurrence: US)
  Receive Date: 20120106
  Receipt Date: 20120925
  Transmission Date: 20130627
  Serious: Yes (Death, Hospitalization)
  Sender: FDA-Public Use
  Company Number: US-GLAXOSMITHKLINE-A0785162A

PATIENT
  Age: 64 Year
  Sex: Female
  Weight: 65.9 kg

DRUGS (1)
  1. ROSIGLITAZONE MALEATE [Suspect]
     Indication: DIABETES MELLITUS
     Route: 048

REACTIONS (3)
  - Death [Fatal]
  - Cerebrovascular accident [Unknown]
  - Acute myocardial infarction [Unknown]
